FAERS Safety Report 10708914 (Version 1)
Quarter: 2015Q1

REPORT INFORMATION
  Report Type: Spontaneous
  Country: CA (occurrence: CA)
  Receive Date: 20150114
  Receipt Date: 20150114
  Transmission Date: 20150721
  Serious: Yes (Hospitalization)
  Sender: FDA-Public Use
  Company Number: CA-ROCHE-1518753

PATIENT
  Age: 72 Year
  Sex: Female
  Weight: 107 kg

DRUGS (40)
  1. RITUXAN [Suspect]
     Active Substance: RITUXIMAB
     Indication: B-CELL LYMPHOMA
     Dosage: THERAPY DURATION: 29 DAYS
     Route: 042
  2. TREANDA [Suspect]
     Active Substance: BENDAMUSTINE HYDROCHLORIDE
     Indication: B-CELL LYMPHOMA
     Dosage: THERAPY DURATION: 28 DAYS
     Route: 042
  3. MAALOX (CALCIUM CARBONATE) [Concomitant]
  4. SOLU-CORTEF [Concomitant]
     Active Substance: HYDROCORTISONE SODIUM SUCCINATE
     Route: 030
  5. ZOFRAN [Concomitant]
     Active Substance: ONDANSETRON HYDROCHLORIDE
  6. ACETAMINOPHEN. [Concomitant]
     Active Substance: ACETAMINOPHEN
  7. BENADRYL [Concomitant]
     Active Substance: DIPHENHYDRAMINE HYDROCHLORIDE
  8. CLONAZEPAM. [Concomitant]
     Active Substance: CLONAZEPAM
     Route: 065
  9. FERROUS CHLORIDE [Concomitant]
     Active Substance: FERROUS CHLORIDE
  10. K-DUR [Concomitant]
     Active Substance: POTASSIUM CHLORIDE
     Route: 065
  11. MAGNESIUM GLUCONATE [Concomitant]
     Active Substance: MAGNESIUM GLUCONATE
     Route: 065
  12. OMEPRAZOLE. [Concomitant]
     Active Substance: OMEPRAZOLE
  13. VENTOLIN [Concomitant]
     Active Substance: ALBUTEROL SULFATE
  14. ELMIRON [Concomitant]
     Active Substance: PENTOSAN POLYSULFATE SODIUM
     Route: 065
  15. METOCLOPRAMIDE. [Concomitant]
     Active Substance: METOCLOPRAMIDE
  16. NAPROSYN [Concomitant]
     Active Substance: NAPROXEN
     Route: 065
  17. TYLENOL [Concomitant]
     Active Substance: ACETAMINOPHEN
  18. AVELOX [Concomitant]
     Active Substance: MOXIFLOXACIN HYDROCHLORIDE
  19. PANTOLOC [Concomitant]
     Active Substance: PANTOPRAZOLE SODIUM
     Route: 065
  20. QUININE [Concomitant]
     Active Substance: QUININE
  21. VENLAFAXINE HYDROCHLORIDE. [Concomitant]
     Active Substance: VENLAFAXINE HYDROCHLORIDE
     Dosage: RIVA-VENLAFAXINE XR
     Route: 065
  22. FLEET NOS [Concomitant]
     Active Substance: BISACODYL OR GLYCERIN OR MINERAL OIL OR SODIUM PHOSPHATE, DIBASIC\SODIUM PHOSPHATE, MONOBASIC
     Route: 054
  23. FRAGMIN [Concomitant]
     Active Substance: DALTEPARIN SODIUM
     Route: 042
  24. HEPARIN SODIUM. [Concomitant]
     Active Substance: HEPARIN SODIUM
     Route: 042
  25. LAX-A-DAY [Concomitant]
     Route: 048
  26. PULMICORT TURBUHALER [Concomitant]
     Active Substance: BUDESONIDE
  27. ROSUVASTATIN [Concomitant]
     Active Substance: ROSUVASTATIN
     Route: 065
  28. NEUPOGEN [Concomitant]
     Active Substance: FILGRASTIM
     Route: 042
  29. SENOKOT [Concomitant]
     Active Substance: SENNOSIDES
  30. BISOPROLOL [Concomitant]
     Active Substance: BISOPROLOL
     Route: 065
  31. D-TABS [Concomitant]
     Active Substance: CHOLECALCIFEROL
     Route: 065
  32. NIFEDIPINE. [Concomitant]
     Active Substance: NIFEDIPINE
  33. TELMISARTAN. [Concomitant]
     Active Substance: TELMISARTAN
     Route: 065
  34. STEMETIL [Concomitant]
     Active Substance: PROCHLORPERAZINE MALEATE
  35. ATIVAN [Concomitant]
     Active Substance: LORAZEPAM
  36. CELESTODERM-V [Concomitant]
  37. ERGOCALCIFEROL. [Concomitant]
     Active Substance: ERGOCALCIFEROL
  38. GRAVOL [Concomitant]
     Active Substance: DIMENHYDRINATE
  39. MORPHINE [Concomitant]
     Active Substance: MORPHINE
  40. SYNTHROID [Concomitant]
     Active Substance: LEVOTHYROXINE SODIUM

REACTIONS (7)
  - Cholecystitis acute [Not Recovered/Not Resolved]
  - Alanine aminotransferase increased [Not Recovered/Not Resolved]
  - Cholelithiasis [Not Recovered/Not Resolved]
  - Off label use [Unknown]
  - Aspartate aminotransferase increased [Not Recovered/Not Resolved]
  - Neutropenia [Not Recovered/Not Resolved]
  - Pyrexia [Not Recovered/Not Resolved]
